FAERS Safety Report 23936837 (Version 1)
Quarter: 2024Q2

REPORT INFORMATION
  Report Type: Spontaneous
  Country: US (occurrence: US)
  Receive Date: 20240604
  Receipt Date: 20240604
  Transmission Date: 20240716
  Serious: No
  Sender: FDA-Public Use
  Company Number: US-ALKERMES INC.-ALK-2024-001377

PATIENT
  Sex: Male
  Weight: 99.773 kg

DRUGS (2)
  1. VIVITROL [Suspect]
     Active Substance: NALTREXONE
     Indication: Alcoholism
     Dosage: 380 MILLIGRAM, QMO
     Route: 030
     Dates: start: 2023
  2. OTHER MUSCLE RELAXANTS, PERIPHERALLY ACTING AGENTS [Concomitant]
     Indication: Muscle disorder
     Dosage: UNK
     Route: 065

REACTIONS (3)
  - Bone pain [Unknown]
  - Intervertebral disc protrusion [Unknown]
  - Arthralgia [Unknown]
